FAERS Safety Report 9432736 (Version 2)
Quarter: 2013Q3

REPORT INFORMATION
  Report Type: Spontaneous
  Country: US (occurrence: US)
  Receive Date: 20130729
  Receipt Date: 20130813
  Transmission Date: 20140515
  Serious: Yes (Other)
  Sender: FDA-Public Use
  Company Number: 2013P1013206

PATIENT
  Age: 19 Year
  Sex: Male

DRUGS (2)
  1. MYORISAN 40 MG [Suspect]
     Indication: ACNE
     Route: 048
     Dates: start: 20121001, end: 20130708
  2. VYVANSE [Concomitant]

REACTIONS (4)
  - Suicidal ideation [None]
  - Adjustment disorder [None]
  - Anxiety [None]
  - Depressed mood [None]
